FAERS Safety Report 9827922 (Version 1)
Quarter: 2014Q1

REPORT INFORMATION
  Report Type: Spontaneous
  Country: US (occurrence: US)
  Receive Date: 20140117
  Receipt Date: 20140117
  Transmission Date: 20141002
  Serious: Yes (Other)
  Sender: FDA-Public Use
  Company Number: US-ASTRAZENECA-2014SE02281

PATIENT
  Age: 58 Year
  Sex: Female
  Weight: 62.1 kg

DRUGS (4)
  1. ARIMIDEX [Suspect]
     Indication: BREAST CANCER
     Route: 048
     Dates: start: 201210, end: 2013
  2. FASLODEX [Suspect]
     Indication: BREAST CANCER
     Route: 048
     Dates: start: 201304
  3. FEMARA [Suspect]
     Route: 065
  4. TAMOXIFEN [Concomitant]

REACTIONS (5)
  - Haemorrhage [Unknown]
  - Activities of daily living impaired [Unknown]
  - Arthralgia [Unknown]
  - Blood glucose increased [Not Recovered/Not Resolved]
  - Off label use [Unknown]
